FAERS Safety Report 10635339 (Version 2)
Quarter: 2014Q4

REPORT INFORMATION
  Report Type: Spontaneous
  Country: US (occurrence: US)
  Receive Date: 20141205
  Receipt Date: 20141205
  Transmission Date: 20150529
  Serious: No
  Sender: FDA-Public Use
  Company Number: US-BIOMARINAP-US-2014-102467

PATIENT
  Sex: Male
  Weight: 83 kg

DRUGS (1)
  1. KUVAN [Suspect]
     Active Substance: SAPROPTERIN DIHYDROCHLORIDE
     Indication: AMINO ACID LEVEL INCREASED
     Dosage: 1700 MG, QD
     Route: 048
     Dates: start: 20130708

REACTIONS (1)
  - Mass [Unknown]
